FAERS Safety Report 5272765-0 (Version None)
Quarter: 2007Q1

REPORT INFORMATION
  Report Type: 
  Country: None (occurrence: None)
  Receive Date: 20070322
  Receipt Date: 20070314
  Transmission Date: 20070707
  Serious: Yes (Hospitalization)
  Sender: FDA-Public Use
  Company Number: US-GLAXOSMITHKLINE-B0457572A

PATIENT
  Age: 53 Year
  Sex: Female
  Weight: 112.5 kg

DRUGS (4)
  1. PLACEBO [Suspect]
     Dates: start: 20070117
  2. ZOFRAN [Suspect]
     Dosage: 16MG PER DAY
     Route: 048
     Dates: start: 20070117
  3. DEXAMETHASONE [Suspect]
     Dosage: 8MG PER DAY
     Route: 042
     Dates: start: 20070117
  4. PNEUMOVAX 23 [Concomitant]
     Indication: PNEUMOCOCCAL INFECTION
     Dates: start: 20070207, end: 20070207

REACTIONS (4)
  - DEHYDRATION [None]
  - PYREXIA [None]
  - SEPSIS [None]
  - VOMITING [None]
